FAERS Safety Report 25716884 (Version 2)
Quarter: 2025Q4

REPORT INFORMATION
  Report Type: Spontaneous
  Country: US (occurrence: US)
  Receive Date: 20250822
  Receipt Date: 20251119
  Transmission Date: 20260118
  Serious: No
  Sender: AZURITY PHARMACEUTICALS
  Company Number: US-AZURITY PHARMACEUTICALS, INC.-AZR202507-001996

PATIENT
  Sex: Female

DRUGS (2)
  1. DANZITEN [Suspect]
     Active Substance: NILOTINIB
     Indication: Philadelphia positive chronic myeloid leukaemia
     Dosage: 142 MILLIGRAM, BID
     Route: 065
     Dates: start: 202503
  2. DANZITEN [Suspect]
     Active Substance: NILOTINIB
     Dosage: 142 MILLIGRAM, BID
     Route: 065
     Dates: start: 202503

REACTIONS (2)
  - Intentional dose omission [Unknown]
  - Therapy interrupted [Unknown]

NARRATIVE: CASE EVENT DATE: 20250101
